FAERS Safety Report 24789920 (Version 1)
Quarter: 2024Q4

REPORT INFORMATION
  Report Type: Spontaneous
  Country: US (occurrence: None)
  Receive Date: 20241230
  Receipt Date: 20241230
  Transmission Date: 20250115
  Serious: Yes (Death)
  Sender: Public
  Company Number: None

PATIENT
  Age: 52 Year
  Sex: Female
  Weight: 65.77 kg

DRUGS (5)
  1. DULOXETINE [Suspect]
     Active Substance: DULOXETINE
  2. CLONAZEPAM [Concomitant]
     Active Substance: CLONAZEPAM
     Dosage: FREQUENCY : TWICE A DAY;?
     Route: 048
  3. EUTHYROX [Concomitant]
     Active Substance: LEVOTHYROXINE SODIUM
     Dosage: FREQUENCY : DAILY;?
  4. GABAPENTIN [Concomitant]
     Active Substance: GABAPENTIN
     Dosage: FREQUENCY : TWICE A DAY;?
  5. PANTOPRAZOLE [Concomitant]
     Active Substance: PANTOPRAZOLE
     Dosage: FREQUENCY : TWICE A DAY;?

REACTIONS (3)
  - Stress [None]
  - Sleep disorder [None]
  - Lipids abnormal [None]

NARRATIVE: CASE EVENT DATE: 20241109
